FAERS Safety Report 4509336-7 (Version None)
Quarter: 2004Q4

REPORT INFORMATION
  Report Type: 
  Country: None (occurrence: None)
  Receive Date: 20041025
  Receipt Date: 20040709
  Transmission Date: 20050328
  Serious: Yes (Hospitalization)
  Sender: FDA-Public Use
  Company Number: US-JNJFOC-20040703023

PATIENT
  Age: 70 Year
  Sex: Male

DRUGS (11)
  1. INFLIXIMAB (INFLIXIMAB, RECOMBINANT) LYOPHILIZED POWDER [Suspect]
     Indication: RHEUMATOID ARTHRITIS
     Dosage: , 1 IN 5 WEEK, INTRAVENOUS
     Route: 042
     Dates: start: 20011020
  2. METHOTREXATE [Concomitant]
  3. VICODIN [Concomitant]
  4. DIOVAN [Concomitant]
  5. SYNTHROID [Concomitant]
  6. PRAVACHOL [Concomitant]
  7. MINOCYCLINE HCL [Concomitant]
  8. ASPIRIN [Concomitant]
  9. FOLIC ACID [Concomitant]
  10. L-LYSINE (LYSINE) [Concomitant]
  11. MULTIVITAMIN [Concomitant]

REACTIONS (1)
  - GRAFT INFECTION [None]
